FAERS Safety Report 19375151 (Version 1)
Quarter: 2021Q2

REPORT INFORMATION
  Report Type: Spontaneous
  Country: US (occurrence: US)
  Receive Date: 20210604
  Receipt Date: 20210604
  Transmission Date: 20210717
  Serious: No
  Sender: FDA-Public Use
  Company Number: US-GLAXOSMITHKLINE-US2021114580

PATIENT
  Age: 71 Year
  Sex: Female

DRUGS (1)
  1. FLONASE SENSIMIST ALLERGY RELIEF [Suspect]
     Active Substance: FLUTICASONE FUROATE
     Indication: HYPERSENSITIVITY
     Dosage: 1 DF, SINGLE
     Dates: start: 20210522, end: 20210522

REACTIONS (1)
  - Eye pruritus [Unknown]

NARRATIVE: CASE EVENT DATE: 20210525
